FAERS Safety Report 6407544-1 (Version None)
Quarter: 2009Q4

REPORT INFORMATION
  Report Type: 
  Country: None (occurrence: None)
  Receive Date: 20091020
  Receipt Date: 20091013
  Transmission Date: 20100525
  Serious: Yes (Death, Other)
  Sender: FDA-Public Use
  Company Number: GB-TEVA-212627ISR

PATIENT
  Age: 33 Year
  Sex: Female

DRUGS (3)
  1. VENLAFAXINE [Suspect]
     Route: 048
     Dates: start: 20040101
  2. CLOZAPINE [Suspect]
     Indication: SCHIZOPHRENIA
     Dates: start: 20090501
  3. CLOZAPINE [Suspect]
     Dates: start: 20050819

REACTIONS (3)
  - CONVULSION [None]
  - DRUG TOXICITY [None]
  - SYNCOPE [None]
